FAERS Safety Report 14774130 (Version 9)
Quarter: 2018Q4

REPORT INFORMATION
  Report Type: Report from Study
  Country: PE (occurrence: PE)
  Receive Date: 20180418
  Receipt Date: 20181217
  Transmission Date: 20190204
  Serious: Yes (Other)
  Sender: FDA-Public Use
  Company Number: PE-SA-2018SA057710

PATIENT
  Age: 20 Year
  Sex: Male

DRUGS (6)
  1. SALBUTAMOL [Concomitant]
     Active Substance: ALBUTEROL
     Indication: NASOPHARYNGITIS
     Dosage: FREQUENCY: CONDITIONAL
     Route: 048
  2. ACICLOVIR [Concomitant]
     Active Substance: ACYCLOVIR
     Indication: PROPHYLAXIS
     Dosage: UNK UNK,QD
     Route: 048
     Dates: start: 20180222
  3. METHYLPREDNISOLONE. [Concomitant]
     Active Substance: METHYLPREDNISOLONE
     Indication: PROPHYLAXIS
     Dosage: UNK UNK,QD
     Route: 042
     Dates: start: 20180222, end: 20180224
  4. RANITIDINE. [Concomitant]
     Active Substance: RANITIDINE
     Indication: PROPHYLAXIS
     Dosage: UNK UNK,QD
     Route: 048
     Dates: start: 20180221
  5. ALEMTUZUMAB [Suspect]
     Active Substance: ALEMTUZUMAB
     Indication: MULTIPLE SCLEROSIS
     Dosage: 12 MG,QD
     Route: 041
     Dates: start: 20180222, end: 20180226
  6. PARACETAMOL [Concomitant]
     Active Substance: ACETAMINOPHEN
     Indication: PROPHYLAXIS
     Dosage: UNK UNK,QD
     Route: 048
     Dates: start: 20180222, end: 20180226

REACTIONS (34)
  - Dysphonia [Recovered/Resolved]
  - Neutrophil percentage increased [Recovered/Resolved]
  - Neutrophil percentage decreased [Unknown]
  - Blood urea decreased [Recovered/Resolved]
  - Culture urine positive [Recovered/Resolved]
  - Alanine aminotransferase increased [Recovered/Resolved]
  - Urinary sediment present [Not Recovered/Not Resolved]
  - Eosinophil percentage increased [Not Recovered/Not Resolved]
  - Neutrophil count decreased [Recovered/Resolved]
  - Peripheral swelling [Recovered/Resolved]
  - Lymphocyte count decreased [Recovered/Resolved]
  - Nausea [Recovered/Resolved]
  - Laboratory test abnormal [Unknown]
  - Leukocyturia [Not Recovered/Not Resolved]
  - Eosinophil count increased [Not Recovered/Not Resolved]
  - Klebsiella test positive [Recovered/Resolved]
  - Rash [Recovered/Resolved]
  - Creatinine urine increased [Recovered/Resolved]
  - Blood albumin increased [Not Recovered/Not Resolved]
  - Albumin globulin ratio increased [Not Recovered/Not Resolved]
  - Lymphocyte percentage decreased [Not Recovered/Not Resolved]
  - Back pain [Recovered/Resolved]
  - Headache [Recovered/Resolved]
  - Aspartate aminotransferase increased [Recovered/Resolved]
  - Urine analysis abnormal [Recovered/Resolved]
  - Muscle contracture [Recovered/Resolved]
  - Protein total increased [Recovered/Resolved]
  - Globulins decreased [Recovered/Resolved]
  - Cough [Recovered/Resolved]
  - Lymphopenia [Recovered/Resolved]
  - Urinary tract infection [Recovered/Resolved]
  - Haematuria [Not Recovered/Not Resolved]
  - Leukopenia [Recovered/Resolved]
  - Monocyte percentage increased [Recovered/Resolved]

NARRATIVE: CASE EVENT DATE: 20180223
